FAERS Safety Report 9407118 (Version 1)
Quarter: 2013Q3

REPORT INFORMATION
  Report Type: Spontaneous
  Country: US (occurrence: US)
  Receive Date: 20130718
  Receipt Date: 20130718
  Transmission Date: 20140515
  Serious: Yes (Hospitalization, Other)
  Sender: FDA-Public Use
  Company Number: PHHY2013US074431

PATIENT
  Age: 72 Year
  Sex: Female

DRUGS (12)
  1. OXALIPLATIN [Suspect]
     Indication: PANCREATIC CARCINOMA METASTATIC
     Dosage: 80 % DOSE REDUCTION
  2. OXALIPLATIN [Suspect]
     Dosage: 90 % DOSE
  3. OXALIPLATIN [Suspect]
     Dosage: 80 % DOSE
  4. 5-FLUOROURACIL [Suspect]
     Indication: PANCREATIC CARCINOMA METASTATIC
     Dosage: 80 % DOSE REDUCTION
  5. 5-FLUOROURACIL [Suspect]
     Dosage: 90 % DOSE
  6. 5-FLUOROURACIL [Suspect]
     Dosage: 80 % DOSE
  7. IRINOTECAN [Suspect]
     Indication: PANCREATIC CARCINOMA METASTATIC
     Dosage: 80 % DOSE REDUCTION
  8. IRINOTECAN [Suspect]
     Dosage: 90 % DOSE
  9. IRINOTECAN [Suspect]
     Dosage: 80 % DOSE
  10. FOLINIC ACID [Suspect]
     Indication: PANCREATIC CARCINOMA METASTATIC
     Dosage: 80 % DOSE REDUCTION
  11. FOLINIC ACID [Suspect]
     Dosage: 90 % DOSE
  12. FOLINIC ACID [Suspect]
     Dosage: 80 % DOSE

REACTIONS (9)
  - Bone marrow failure [Unknown]
  - Diarrhoea [Unknown]
  - Peripheral sensory neuropathy [Unknown]
  - Anaemia [Recovering/Resolving]
  - Thrombocytopenia [Recovering/Resolving]
  - Pancytopenia [Not Recovered/Not Resolved]
  - Herpes zoster [Recovered/Resolved]
  - Vomiting [Unknown]
  - Nausea [Unknown]
